FAERS Safety Report 12232477 (Version 1)
Quarter: 2016Q2

REPORT INFORMATION
  Report Type: Spontaneous
  Country: US (occurrence: US)
  Receive Date: 20160401
  Receipt Date: 20160401
  Transmission Date: 20160815
  Serious: Yes (Other)
  Sender: FDA-Public Use
  Company Number: PHHY2016US042052

PATIENT
  Age: 52 Year
  Sex: Female

DRUGS (3)
  1. TRIAMCINOLONE [Suspect]
     Active Substance: TRIAMCINOLONE
     Dosage: 0.4 ML, UNK
     Route: 026
  2. TRIAMCINOLONE [Suspect]
     Active Substance: TRIAMCINOLONE
     Indication: MYCOSIS FUNGOIDES
     Dosage: 0.1 ML, UNK
     Route: 026
  3. TRIAMCINOLONE [Suspect]
     Active Substance: TRIAMCINOLONE
     Indication: MYCOSIS FUNGOIDES
     Dosage: UNK UNK, BID
     Route: 061

REACTIONS (1)
  - Drug resistance [Unknown]
